FAERS Safety Report 24195191 (Version 1)
Quarter: 2024Q3

REPORT INFORMATION
  Report Type: Report from Study
  Country: CA (occurrence: None)
  Receive Date: 20240809
  Receipt Date: 20240809
  Transmission Date: 20241016
  Serious: Yes (Life-Threatening, Hospitalization)
  Sender: ASTRAZENECA
  Company Number: 2024A178758

PATIENT
  Sex: Female

DRUGS (2)
  1. SAPHNELO [Suspect]
     Active Substance: ANIFROLUMAB-FNIA
     Indication: Autoantibody positive
     Route: 042
     Dates: start: 20240213
  2. SAPHNELO [Suspect]
     Active Substance: ANIFROLUMAB-FNIA
     Indication: Systemic lupus erythematosus
     Route: 042
     Dates: start: 20240213

REACTIONS (2)
  - Cardiogenic shock [Unknown]
  - Cardiac failure [Unknown]

NARRATIVE: CASE EVENT DATE: 20240101
